FAERS Safety Report 4744300-4 (Version None)
Quarter: 2005Q3

REPORT INFORMATION
  Report Type: 
  Country: None (occurrence: None)
  Receive Date: 20050811
  Receipt Date: 20050811
  Transmission Date: 20060218
  Serious: Yes (Other)
  Sender: FDA-Public Use
  Company Number: None

PATIENT
  Age: 5 Year
  Sex: Male
  Weight: 17.2367 kg

DRUGS (2)
  1. FLOVENT [Suspect]
     Indication: ASTHMA
     Dosage: ONE PUFF 2XDAY RESPIRATOR
     Route: 055
     Dates: start: 20031101, end: 20050720
  2. ALBUTEROL [Concomitant]

REACTIONS (8)
  - ABNORMAL BEHAVIOUR [None]
  - AGGRESSION [None]
  - ANGER [None]
  - CRYING [None]
  - EMOTIONAL DISORDER [None]
  - MENTAL DISORDER [None]
  - OPPOSITIONAL DEFIANT DISORDER [None]
  - PERSONALITY CHANGE [None]
